FAERS Safety Report 7429000-4 (Version None)
Quarter: 2011Q2

REPORT INFORMATION
  Report Type: 
  Country: None (occurrence: None)
  Receive Date: 20110421
  Receipt Date: 20110419
  Transmission Date: 20111010
  Serious: Yes (Hospitalization)
  Sender: FDA-Public Use
  Company Number: US-B.I. PHARMACEUTICALS,INC./RIDGEFIELD-2011-BP-09782BP

PATIENT
  Age: 61 Year
  Sex: Male

DRUGS (4)
  1. PRADAXA [Suspect]
     Indication: CEREBROVASCULAR ACCIDENT PROPHYLAXIS
     Dosage: 300 MG
     Route: 048
     Dates: start: 20110327
  2. GABAPENTIN [Concomitant]
     Dosage: 1200 MG
  3. EFFEXOR [Concomitant]
     Dosage: 150 MG
  4. PRADAXA [Suspect]
     Indication: ATRIAL FIBRILLATION
     Dosage: 300 MG
     Route: 048
     Dates: start: 20110318, end: 20110325

REACTIONS (6)
  - DIZZINESS [None]
  - FEELING DRUNK [None]
  - DYSPNOEA [None]
  - CHEST PAIN [None]
  - FLUSHING [None]
  - PRURITUS GENERALISED [None]
